FAERS Safety Report 18306507 (Version 3)
Quarter: 2024Q1

REPORT INFORMATION
  Report Type: Other
  Country: PL (occurrence: None)
  Receive Date: 20200924
  Receipt Date: 20240330
  Transmission Date: 20240410
  Serious: Yes (Hospitalization)
  Sender: FDA-Public Use
  Company Number: PL-ROCHE-2683490

PATIENT
  Age: 66 Year
  Sex: Male
  Weight: 82 kg

DRUGS (14)
  1. ATEZOLIZUMAB [Suspect]
     Active Substance: ATEZOLIZUMAB
     Indication: Non-small cell lung cancer metastatic
     Dosage: ON 28/AUG/2020, HE RECEIVED THE MOST RECENT DOSE OF ATEZOLIZUMAB PRIOR TO EVENT ONSET.
     Route: 041
     Dates: start: 20200807
  2. INSULIN HUMAN [Concomitant]
     Active Substance: INSULIN HUMAN
     Indication: Type 2 diabetes mellitus
  3. INSULIN HUMAN [Concomitant]
     Active Substance: INSULIN HUMAN
     Indication: Type 2 diabetes mellitus
  4. CORONAL [Concomitant]
     Indication: Hypertension
  5. CONTROLOC [Concomitant]
     Active Substance: PANTOPRAZOLE SODIUM
  6. GLUCOPHAGE [Concomitant]
     Active Substance: METFORMIN HYDROCHLORIDE
     Indication: Type 2 diabetes mellitus
  7. LEVOTHYROXINE SODIUM [Concomitant]
     Active Substance: LEVOTHYROXINE SODIUM
     Indication: Hypothyroidism
  8. ROSUVASTATIN CALCIUM [Concomitant]
     Active Substance: ROSUVASTATIN CALCIUM
     Indication: Prophylaxis
  9. HEPAREGEN [Concomitant]
     Indication: Prophylaxis
  10. DEXAMETHASONE [Concomitant]
     Active Substance: DEXAMETHASONE
     Indication: Prophylaxis
  11. FUROSEMIDE [Concomitant]
     Active Substance: FUROSEMIDE
  12. POTASSIUM CHLORIDE [Concomitant]
     Active Substance: POTASSIUM CHLORIDE
  13. ENOXAPARIN SODIUM [Concomitant]
     Active Substance: ENOXAPARIN SODIUM
  14. ATARAX [Concomitant]
     Active Substance: HYDROXYZINE HYDROCHLORIDE

REACTIONS (1)
  - Hepatic enzyme increased [Recovering/Resolving]

NARRATIVE: CASE EVENT DATE: 20200921
